FAERS Safety Report 4448033-3 (Version None)
Quarter: 2004Q3

REPORT INFORMATION
  Report Type: 
  Country: None (occurrence: None)
  Receive Date: 20040812
  Receipt Date: 20040625
  Transmission Date: 20050211
  Serious: No
  Sender: FDA-Public Use
  Company Number: USA040671149

PATIENT
  Age: 55 Year
  Sex: Male
  Weight: 150 kg

DRUGS (1)
  1. CIALIS [Suspect]
     Dosage: 20 MG/1 OTHER
     Route: 050
     Dates: start: 20040611

REACTIONS (1)
  - JOINT SWELLING [None]
